FAERS Safety Report 19035455 (Version 3)
Quarter: 2021Q2

REPORT INFORMATION
  Report Type: Report from Study
  Country: CO (occurrence: CO)
  Receive Date: 20210320
  Receipt Date: 20210422
  Transmission Date: 20210717
  Serious: No
  Sender: FDA-Public Use
  Company Number: CO-TAKEDA-2021TUS016395

PATIENT
  Sex: Male
  Weight: 66 kg

DRUGS (2)
  1. ICATIBANT [Suspect]
     Active Substance: ICATIBANT ACETATE
     Indication: HEREDITARY ANGIOEDEMA
     Dosage: 30 MILLIGRAM, TID
     Route: 058
     Dates: start: 20210305
  2. ICATIBANT [Suspect]
     Active Substance: ICATIBANT ACETATE
     Indication: HEREDITARY ANGIOEDEMA
     Dosage: 30 MILLIGRAM, TID
     Route: 058
     Dates: start: 20210305

REACTIONS (1)
  - No adverse event [Unknown]
